FAERS Safety Report 20844000 (Version 2)
Quarter: 2022Q2

REPORT INFORMATION
  Report Type: Spontaneous
  Country: DE (occurrence: DE)
  Receive Date: 20220518
  Receipt Date: 20220613
  Transmission Date: 20220721
  Serious: Yes (Hospitalization)
  Sender: FDA-Public Use
  Company Number: DE-GUERBET-DE-20220046

PATIENT
  Age: 41 Year
  Sex: Male
  Weight: 92 kg

DRUGS (1)
  1. DOTAREM [Suspect]
     Active Substance: GADOTERATE MEGLUMINE
     Indication: Magnetic resonance imaging
     Route: 042
     Dates: start: 20220509, end: 20220509

REACTIONS (6)
  - Pain in jaw [Unknown]
  - Paraesthesia [Not Recovered/Not Resolved]
  - Burning sensation [Recovered/Resolved]
  - Ocular hyperaemia [Not Recovered/Not Resolved]
  - Headache [Recovering/Resolving]
  - Vomiting [Recovering/Resolving]

NARRATIVE: CASE EVENT DATE: 20220509
